FAERS Safety Report 20575837 (Version 2)
Quarter: 2022Q2

REPORT INFORMATION
  Report Type: Report from Study
  Country: BR (occurrence: BR)
  Receive Date: 20220310
  Receipt Date: 20220414
  Transmission Date: 20220721
  Serious: Yes (Death, Hospitalization, Other)
  Sender: FDA-Public Use
  Company Number: BR-NOVARTISPH-NVSC2022BR055894

PATIENT
  Sex: Female
  Weight: 80 kg

DRUGS (2)
  1. EXFORGE HCT [Suspect]
     Active Substance: AMLODIPINE BESYLATE\HYDROCHLOROTHIAZIDE\VALSARTAN
     Indication: Hypertension
     Dosage: 5/12.5/160 MG
     Route: 065
     Dates: end: 20210704
  2. EXFORGE HCT [Suspect]
     Active Substance: AMLODIPINE BESYLATE\HYDROCHLOROTHIAZIDE\VALSARTAN
     Dosage: 1 DOSAGE FORM, QD (160+12,5+5MG)
     Route: 048

REACTIONS (2)
  - COVID-19 [Fatal]
  - Breast cancer [Recovered/Resolved]

NARRATIVE: CASE EVENT DATE: 20190101
